FAERS Safety Report 6678062-0 (Version None)
Quarter: 2010Q2

REPORT INFORMATION
  Report Type: 
  Country: None (occurrence: None)
  Receive Date: 20100412
  Receipt Date: 20100402
  Transmission Date: 20101027
  Serious: Yes (Other)
  Sender: FDA-Public Use
  Company Number: PHHY2010JP22037

PATIENT
  Sex: Male
  Weight: 50 kg

DRUGS (1)
  1. NEORAL [Suspect]
     Indication: APLASTIC ANAEMIA
     Dosage: 100 MG DAILY
     Route: 048
     Dates: start: 19970430

REACTIONS (1)
  - RENAL DISORDER [None]
